FAERS Safety Report 20735699 (Version 1)
Quarter: 2022Q2

REPORT INFORMATION
  Report Type: Spontaneous
  Country: JP (occurrence: JP)
  Receive Date: 20220421
  Receipt Date: 20220421
  Transmission Date: 20220720
  Serious: Yes (Hospitalization, Other)
  Sender: FDA-Public Use
  Company Number: JP-PFIZER INC-202200560313

PATIENT
  Age: 67 Year
  Sex: Female

DRUGS (1)
  1. METHOTREXATE SODIUM [Suspect]
     Active Substance: METHOTREXATE SODIUM
     Indication: Rheumatoid arthritis
     Dosage: UNK
     Route: 048

REACTIONS (9)
  - Malaise [Unknown]
  - Oedema peripheral [Unknown]
  - Pancytopenia [Unknown]
  - Hepatic enzyme increased [Unknown]
  - Lymphoproliferative disorder [Unknown]
  - Respiratory disorder [Unknown]
  - Pleural effusion [Unknown]
  - B-cell lymphoma [Unknown]
  - Myelofibrosis [Unknown]
